FAERS Safety Report 5034669-8 (Version None)
Quarter: 2006Q2

REPORT INFORMATION
  Report Type: 
  Country: None (occurrence: None)
  Receive Date: 20060621
  Receipt Date: 20060607
  Transmission Date: 20061013
  Serious: Yes (Hospitalization, Disabling)
  Sender: FDA-Public Use
  Company Number: SPV1-2006-00018

PATIENT
  Age: 66 Year
  Sex: Female

DRUGS (5)
  1. PENTASA [Suspect]
     Indication: COLITIS ULCERATIVE
     Dosage: 750 MG, 3X/DAY:TID,ORAL
     Route: 048
     Dates: start: 19971021, end: 20060426
  2. PENTASA [Suspect]
     Indication: COLITIS ULCERATIVE
     Dosage: 1000 MG DAILY, RECTAL
     Route: 054
     Dates: start: 20050701, end: 20060426
  3. ALFACALCIDOL [Concomitant]
  4. RABEPRAZOLE SODIUM [Concomitant]
  5. CARBOCISTEINE [Concomitant]

REACTIONS (1)
  - PNEUMONIA [None]
